FAERS Safety Report 18510405 (Version 1)
Quarter: 2020Q4

REPORT INFORMATION
  Report Type: Report from Study
  Country: None (occurrence: CA)
  Receive Date: 20201117
  Receipt Date: 20201117
  Transmission Date: 20210114
  Serious: Yes (Other)
  Sender: FDA-Public Use
  Company Number: CA-ABBVIE-20K-028-3649376-00

PATIENT
  Sex: Female

DRUGS (1)
  1. HUMIRA [Suspect]
     Active Substance: ADALIMUMAB
     Indication: RHEUMATOID ARTHRITIS
     Route: 058
     Dates: start: 20101104

REACTIONS (6)
  - Feeling hot [Recovered/Resolved]
  - Hair texture abnormal [Unknown]
  - Dry skin [Not Recovered/Not Resolved]
  - Hyperkeratosis [Unknown]
  - Trichorrhexis [Not Recovered/Not Resolved]
  - Pruritus [Not Recovered/Not Resolved]
